FAERS Safety Report 9527604 (Version 1)
Quarter: 2013Q1

REPORT INFORMATION
  Report Type: Spontaneous
  Country: US (occurrence: None)
  Receive Date: 20130313
  Receipt Date: 20130313
  Transmission Date: 20140127
  Serious: No
  Sender: FDA-Public Use
  Company Number: 1000041339

PATIENT
  Age: 57 Year
  Sex: Female

DRUGS (6)
  1. SAVELLA [Suspect]
     Indication: FIBROMYALGIA
     Dosage: 12.5 MG (12.5 MG,1 IN 1 D), ORAL
     Route: 048
     Dates: start: 2008
  2. SAVELLA [Suspect]
     Indication: FIBROMYALGIA
     Dosage: 100 MG BID (100 MG,2 IN 1 D), ORAL
     Route: 048
  3. SAVELLA [Suspect]
     Indication: FIBROMYALGIA
     Dosage: 50 MG QID (50 MG,4 IN 1 D) , ORAL
     Route: 048
     Dates: end: 201211
  4. HYDROCODONE (HYDROCODONE) (HYDROCODONE) [Concomitant]
  5. VITAMINS NOS (VITAMINS NOS) (VITAMINS NOS) [Concomitant]
  6. AMITIZA (LUBIPROSTONE) (LUBIPROSTONE) [Concomitant]

REACTIONS (5)
  - Alopecia [None]
  - Hyperhidrosis [None]
  - Migraine [None]
  - Drug ineffective [None]
  - Overdose [None]
